FAERS Safety Report 7940099-9 (Version None)
Quarter: 2011Q4

REPORT INFORMATION
  Report Type: 
  Country: None (occurrence: None)
  Receive Date: 20111125
  Receipt Date: 20111118
  Transmission Date: 20120403
  Serious: Yes (Other)
  Sender: FDA-Public Use
  Company Number: US-ELI_LILLY_AND_COMPANY-US201111007170

PATIENT
  Age: 48 Year
  Sex: Male

DRUGS (17)
  1. AGGRENOX [Concomitant]
     Dosage: 25/200, BID
  2. TRILIPIX [Concomitant]
     Dosage: 135 MG, QD
  3. CRESTOR [Concomitant]
     Dosage: 10 MG, UNK
  4. NITROGLYCERIN [Concomitant]
     Dosage: UNK, PRN
  5. D3-VICOTRAT [Concomitant]
     Dosage: 2000 UNITS, BID
  6. IMDUR [Concomitant]
     Dosage: 30, BID
  7. VALIUM [Concomitant]
     Dosage: UNK, PRN
  8. RANEXA [Concomitant]
     Dosage: 1000 MG, BID
  9. NIASPAN [Concomitant]
     Dosage: 500 MG, UNK
  10. TOPROL-XL [Concomitant]
     Dosage: 50 MG, UNK
  11. INSULIN [Concomitant]
     Dosage: UNK, PRN
  12. ASPIRIN [Concomitant]
     Dosage: 325 MG, UNK
  13. EFFIENT [Suspect]
     Indication: STENT PLACEMENT
     Dosage: 10 MG, QD
     Dates: start: 20110601
  14. FISH OIL [Concomitant]
     Dosage: 1200 MG, BID
  15. LISINOPRIL [Concomitant]
     Dosage: 20 MG, BID
  16. MULTI-VITAMIN [Concomitant]
  17. AMBIEN [Concomitant]
     Dosage: UNK, PRN

REACTIONS (1)
  - TRANSIENT ISCHAEMIC ATTACK [None]
